FAERS Safety Report 6840474-X (Version None)
Quarter: 2010Q3

REPORT INFORMATION
  Report Type: 
  Country: None (occurrence: None)
  Receive Date: 20100714
  Receipt Date: 20100707
  Transmission Date: 20110219
  Serious: Yes (Hospitalization)
  Sender: FDA-Public Use
  Company Number: A0811839A

PATIENT
  Age: 47 Year
  Sex: Female

DRUGS (1)
  1. AVANDIA [Suspect]
     Route: 048
     Dates: start: 19990101, end: 20050929

REACTIONS (10)
  - ARRHYTHMIA [None]
  - CARDIAC DISORDER [None]
  - CARDIAC FAILURE CONGESTIVE [None]
  - CHEST PAIN [None]
  - DYSPNOEA [None]
  - LOSS OF CONSCIOUSNESS [None]
  - RENAL FAILURE [None]
  - TRANSIENT ISCHAEMIC ATTACK [None]
  - VENTRICULAR FIBRILLATION [None]
  - VENTRICULAR TACHYCARDIA [None]
